FAERS Safety Report 9643044 (Version 2)
Quarter: 2014Q1

REPORT INFORMATION
  Report Type: Spontaneous
  Country: GB (occurrence: GB)
  Receive Date: 20131024
  Receipt Date: 20140206
  Transmission Date: 20141002
  Serious: Yes (Life-Threatening, Hospitalization, Disabling, Other)
  Sender: FDA-Public Use
  Company Number: GB-BAYER-2013-124187

PATIENT
  Age: 68 Year
  Sex: Female
  Weight: 80.73 kg

DRUGS (7)
  1. CIPROFLOXACIN MONOHYDROCHLORIDE [Suspect]
     Indication: DIVERTICULITIS
     Dosage: 500 MG, BID
     Route: 048
     Dates: start: 20130306, end: 20130316
  2. ASPIRIN [Concomitant]
     Indication: PRURIGO
     Dosage: UNK
  3. CLOPIDOGREL [Concomitant]
  4. CODEINE [Concomitant]
     Dosage: UNK
     Dates: start: 20130911, end: 20130921
  5. IBUPROFEN [Concomitant]
     Indication: PRURIGO
     Dosage: UNK
  6. MEROPENEM [Concomitant]
     Dosage: UNK
     Dates: start: 20130911, end: 20130921
  7. MOMETASONE [Concomitant]
     Indication: PRURIGO

REACTIONS (34)
  - Gait disturbance [Not Recovered/Not Resolved]
  - Abdominal pain upper [Not Recovered/Not Resolved]
  - Pelvic pain [Not Recovered/Not Resolved]
  - Blood pressure decreased [Not Recovered/Not Resolved]
  - Feeling cold [Not Recovered/Not Resolved]
  - Dyspepsia [Not Recovered/Not Resolved]
  - Deafness [Not Recovered/Not Resolved]
  - Neurological symptom [Not Recovered/Not Resolved]
  - Dry eye [Not Recovered/Not Resolved]
  - Vision blurred [Not Recovered/Not Resolved]
  - Cataract [Not Recovered/Not Resolved]
  - Depression [Recovering/Resolving]
  - Dissociation [Recovering/Resolving]
  - Weight decreased [Not Recovered/Not Resolved]
  - Cerebrovascular accident [Not Recovered/Not Resolved]
  - Vertigo [Not Recovered/Not Resolved]
  - Tremor [Not Recovered/Not Resolved]
  - Bedridden [Recovering/Resolving]
  - Superficial vein prominence [Recovering/Resolving]
  - Nausea [Recovering/Resolving]
  - Tremor [Not Recovered/Not Resolved]
  - Asthenia [Not Recovered/Not Resolved]
  - Constipation [Not Recovered/Not Resolved]
  - Diarrhoea [Not Recovered/Not Resolved]
  - Syncope [Not Recovered/Not Resolved]
  - Groin pain [Not Recovered/Not Resolved]
  - Pruritus [Not Recovered/Not Resolved]
  - Tinnitus [Not Recovered/Not Resolved]
  - Pain in extremity [Not Recovered/Not Resolved]
  - Quality of life decreased [Not Recovered/Not Resolved]
  - Rectocele [Not Recovered/Not Resolved]
  - Dry skin [Not Recovered/Not Resolved]
  - Aphasia [Not Recovered/Not Resolved]
  - Hyperhidrosis [Not Recovered/Not Resolved]
